FAERS Safety Report 8452527-3 (Version None)
Quarter: 2012Q2

REPORT INFORMATION
  Report Type: 
  Country: None (occurrence: None)
  Receive Date: 20120323
  Receipt Date: 20111222
  Transmission Date: 20120825
  Serious: Yes (Hospitalization, Other)
  Sender: FDA-Public Use
  Company Number: 163-21880-11110559

PATIENT
  Age: 74 Year
  Sex: Female

DRUGS (2)
  1. EXJADE [Concomitant]
  2. REVLIMID [Suspect]
     Indication: MYELODYSPLASTIC SYNDROME
     Dosage: 1 CAPSULE ALTERNATING WITH 2 CAPSULES, DAILY, PO
     Route: 048
     Dates: start: 20111024

REACTIONS (7)
  - FATIGUE [None]
  - RASH GENERALISED [None]
  - TREMOR [None]
  - ABDOMINAL PAIN UPPER [None]
  - DYSPNOEA [None]
  - DIARRHOEA [None]
  - NAUSEA [None]
